FAERS Safety Report 17243167 (Version 3)
Quarter: 2020Q1

REPORT INFORMATION
  Report Type: Spontaneous
  Country: GB (occurrence: GB)
  Receive Date: 20200107
  Receipt Date: 20200221
  Transmission Date: 20200409
  Serious: Yes (Hospitalization, Other)
  Sender: FDA-Public Use
  Company Number: GB-ASTRAZENECA-2020SE02406

PATIENT
  Sex: Female

DRUGS (8)
  1. RISPERIDONE. [Concomitant]
     Active Substance: RISPERIDONE
  2. QUETIAPINE. [Suspect]
     Active Substance: QUETIAPINE
     Indication: PSYCHOTIC DISORDER
     Dosage: UNKNOWN
     Route: 048
  3. OLANZAPINE. [Concomitant]
     Active Substance: OLANZAPINE
     Indication: PSYCHOTIC DISORDER
     Dosage: X 1 DAILY
  4. TETRABENAZINE. [Concomitant]
     Active Substance: TETRABENAZINE
     Indication: PRODUCT USED FOR UNKNOWN INDICATION
     Dosage: X 3 DAILY
  5. CLONZEPAM [Concomitant]
     Active Substance: CLONAZEPAM
     Indication: SEDATIVE THERAPY
     Dosage: X 3/6 DAILY
  6. PROPRANOLOL [Concomitant]
     Active Substance: PROPRANOLOL HYDROCHLORIDE
     Indication: PRODUCT USED FOR UNKNOWN INDICATION
     Dosage: X 3 DAILY
  7. ZOPICLONE [Concomitant]
     Active Substance: ZOPICLONE
     Indication: SLEEP DISORDER
     Dosage: X 1 DAILY
  8. CLONZEPAM [Concomitant]
     Active Substance: CLONAZEPAM
     Indication: SEDATIVE THERAPY
     Dosage: INCREASED DOSE.

REACTIONS (15)
  - Huntington^s disease [Unknown]
  - Oromandibular dystonia [Not Recovered/Not Resolved]
  - Pain [Unknown]
  - Teeth brittle [Unknown]
  - Depression [Unknown]
  - Parkinsonism [Unknown]
  - Emotional distress [Unknown]
  - Epilepsy [Unknown]
  - Anxiety [Unknown]
  - Impaired quality of life [Unknown]
  - Panic attack [Unknown]
  - Separation anxiety disorder [Unknown]
  - Disturbance in attention [Unknown]
  - Suicidal ideation [Unknown]
  - Tardive dyskinesia [Not Recovered/Not Resolved]
